FAERS Safety Report 4614927-9 (Version None)
Quarter: 2005Q1

REPORT INFORMATION
  Report Type: 
  Country: None (occurrence: None)
  Receive Date: 20050322
  Receipt Date: 20050107
  Transmission Date: 20050727
  Serious: Yes (Disabling)
  Sender: FDA-Public Use
  Company Number: US-MERCK-0501USA00755

PATIENT
  Age: 75 Year
  Sex: Female
  Weight: 48 kg

DRUGS (9)
  1. VIOXX [Suspect]
     Indication: RHEUMATOID ARTHRITIS
     Route: 048
     Dates: start: 20011021, end: 20040501
  2. VIOXX [Suspect]
     Route: 048
     Dates: start: 20040501, end: 20040930
  3. IMURAN [Concomitant]
     Route: 065
  4. LIPITOR [Concomitant]
     Route: 065
  5. VERAPAMIL [Concomitant]
     Route: 065
  6. CYTOTEC [Concomitant]
     Route: 065
  7. PLAVIX [Concomitant]
     Route: 065
  8. ASPIRIN [Concomitant]
     Route: 065
  9. ZOLOFT [Concomitant]
     Route: 065

REACTIONS (1)
  - ATRIAL FIBRILLATION [None]
